FAERS Safety Report 24139111 (Version 2)
Quarter: 2024Q4

REPORT INFORMATION
  Report Type: Spontaneous
  Country: KR (occurrence: KR)
  Receive Date: 20240726
  Receipt Date: 20241223
  Transmission Date: 20250114
  Serious: Yes (Death, Other)
  Sender: BRISTOL-MYERS SQUIBB COMPANY
  Company Number: KR-BRISTOL-MYERS SQUIBB COMPANY-2024-116458

PATIENT
  Age: 81 Year
  Sex: Male
  Weight: 53 kg

DRUGS (18)
  1. VIDAZA [Suspect]
     Active Substance: AZACITIDINE
     Indication: Acute myeloid leukaemia
     Dates: start: 20230609, end: 20230615
  2. ACYCLOVIR [Concomitant]
     Active Substance: ACYCLOVIR
     Indication: Antiviral prophylaxis
     Dates: start: 20230609
  3. ALLOPURINOL [Concomitant]
     Active Substance: ALLOPURINOL
     Indication: Prophylaxis
     Dates: start: 20230609, end: 20230611
  4. SULFAMETHOXAZOLE [Concomitant]
     Active Substance: SULFAMETHOXAZOLE
     Indication: Pneumonia
     Dates: start: 20230630, end: 20230721
  5. CLOPIDOGREL BISULFATE [Concomitant]
     Active Substance: CLOPIDOGREL BISULFATE
     Indication: Coronary artery stenosis
     Dates: start: 202308
  6. AMLODIPINE BESYLATE [Concomitant]
     Active Substance: AMLODIPINE BESYLATE
     Indication: Coronary artery stenosis
     Dates: start: 202308
  7. ATORVASTATIN CALCIUM [Concomitant]
     Active Substance: ATORVASTATIN CALCIUM
     Indication: Hyperlipidaemia
     Dates: start: 20230716
  8. LOPERAMIDE HYDROCHLORIDE [Concomitant]
     Active Substance: LOPERAMIDE HYDROCHLORIDE
     Indication: Diarrhoea
     Dates: start: 20230618, end: 20230619
  9. CILASTATIN SODIUM [Concomitant]
     Active Substance: CILASTATIN SODIUM
     Indication: Pneumonia
     Dates: start: 20230624, end: 20230710
  10. HYDROXYCHLOROQUINE SULFATE [Concomitant]
     Active Substance: HYDROXYCHLOROQUINE SULFATE
     Indication: Systemic lupus erythematosus
     Dates: start: 2020, end: 20230811
  11. AMPHOTERICIN B [Concomitant]
     Active Substance: AMPHOTERICIN B
     Indication: Pneumonia
     Dates: start: 20230625, end: 20230711
  12. NICORANDIL [Concomitant]
     Active Substance: NICORANDIL
     Indication: Coronary artery stenosis
     Dates: end: 202308
  13. CHOLINE ALFOSCERATE [Concomitant]
     Active Substance: CHOLINE ALFOSCERATE
     Indication: Cerebral artery stenosis
     Dates: start: 20230529, end: 202308
  14. AZACITIDINE [Concomitant]
     Active Substance: AZACITIDINE
     Indication: Acute myeloid leukaemia
     Dates: start: 20230609, end: 20230615
  15. AZACITIDINE [Concomitant]
     Active Substance: AZACITIDINE
     Dates: start: 20230830, end: 20230901
  16. AZACITIDINE [Concomitant]
     Active Substance: AZACITIDINE
     Dates: start: 20230904, end: 20230907
  17. AZACITIDINE [Concomitant]
     Active Substance: AZACITIDINE
     Dates: start: 20230717, end: 20230723
  18. TRIMETHOPRIM [Concomitant]
     Active Substance: TRIMETHOPRIM
     Indication: Pneumonia
     Dates: start: 20230630, end: 20230721

REACTIONS (2)
  - Sepsis [Fatal]
  - Febrile neutropenia [Recovered/Resolved]

NARRATIVE: CASE EVENT DATE: 20230614
